FAERS Safety Report 23923169 (Version 1)
Quarter: 2024Q2

REPORT INFORMATION
  Report Type: Spontaneous
  Country: NO (occurrence: NO)
  Receive Date: 20240531
  Receipt Date: 20240531
  Transmission Date: 20240716
  Serious: Yes (Death)
  Sender: FDA-Public Use
  Company Number: None

PATIENT
  Age: 79 Year
  Sex: Female

DRUGS (1)
  1. KEYTRUDA [Suspect]
     Active Substance: PEMBROLIZUMAB
     Route: 042
     Dates: start: 20240508, end: 20240508

REACTIONS (4)
  - Dyspnoea [Fatal]
  - Oxygen saturation decreased [Fatal]
  - Musculoskeletal pain [Fatal]
  - Fatigue [Fatal]

NARRATIVE: CASE EVENT DATE: 20240509
